FAERS Safety Report 4823008-0 (Version None)
Quarter: 2005Q4

REPORT INFORMATION
  Report Type: 
  Country: None (occurrence: None)
  Receive Date: 20051108
  Receipt Date: 20051108
  Transmission Date: 20060501
  Serious: Yes (Death, Hospitalization)
  Sender: FDA-Public Use
  Company Number: None

PATIENT

DRUGS (5)
  1. CYTARABINE [Suspect]
     Indication: B PRECURSOR TYPE ACUTE LEUKAEMIA
     Dosage: SEE IMAGE
     Dates: start: 20050920
  2. DEXAMETHASONE [Suspect]
     Dosage: SEE IMAGE
     Dates: start: 20050920, end: 20051017
  3. METHOTREXATE [Suspect]
     Dosage: SEE IMAGE
     Dates: start: 20050927, end: 20050927
  4. PEG-L-ASPARAGINASE [Suspect]
     Dosage: SEE IMAGE
     Dates: start: 20050923, end: 20050923
  5. VINCRISTINE SULFATE [Suspect]
     Dosage: SEE IMAGE
     Dates: start: 20050920, end: 20051011

REACTIONS (2)
  - MUCORMYCOSIS [None]
  - SMALL INTESTINAL PERFORATION [None]
